FAERS Safety Report 4909375-8 (Version None)
Quarter: 2006Q1

REPORT INFORMATION
  Report Type: 
  Country: None (occurrence: None)
  Receive Date: 20060210
  Receipt Date: 20060210
  Transmission Date: 20060701
  Serious: No
  Sender: FDA-Public Use
  Company Number: None

PATIENT
  Age: 55 Year
  Sex: Male
  Weight: 48.0813 kg

DRUGS (1)
  1. ALENDRONATE SODIUM [Suspect]
     Indication: OSTEONECROSIS
     Dosage: 70MG EVERY WEEK PO
     Route: 048
     Dates: start: 20040630, end: 20060207

REACTIONS (5)
  - INFECTION [None]
  - JAW DISORDER [None]
  - OSTEONECROSIS [None]
  - PAIN IN JAW [None]
  - THERAPY NON-RESPONDER [None]
